FAERS Safety Report 5522640-9 (Version None)
Quarter: 2007Q4

REPORT INFORMATION
  Report Type: 
  Country: None (occurrence: None)
  Receive Date: 20071120
  Receipt Date: 20071115
  Transmission Date: 20080405
  Serious: Yes (Hospitalization)
  Sender: FDA-Public Use
  Company Number: US-SHR-US-2007-007728

PATIENT
  Age: 35 Year
  Sex: Female

DRUGS (2)
  1. BETASERON [Suspect]
     Dosage: 8 MIU, EVERY 2D
     Route: 058
     Dates: start: 20061130, end: 20070202
  2. BETASERON [Suspect]
     Dosage: 8 MIU, EVERY 2D
     Route: 058
     Dates: start: 20070206, end: 20070424

REACTIONS (5)
  - AGGRESSION [None]
  - CONFUSIONAL STATE [None]
  - DEPRESSION [None]
  - MOOD ALTERED [None]
  - PARANOIA [None]
